FAERS Safety Report 21970885 (Version 2)
Quarter: 2023Q4

REPORT INFORMATION
  Report Type: Report from Study
  Country: US (occurrence: US)
  Receive Date: 20230209
  Receipt Date: 20231231
  Transmission Date: 20240110
  Serious: Yes (Other)
  Sender: FDA-Public Use
  Company Number: US-ABBVIE-4300002

PATIENT
  Sex: Male

DRUGS (1)
  1. VENCLEXTA [Suspect]
     Active Substance: VENETOCLAX
     Indication: Chronic lymphocytic leukaemia
     Route: 048
     Dates: start: 20220313

REACTIONS (5)
  - Pulmonary fibrosis [Unknown]
  - Lymphadenopathy [Unknown]
  - COVID-19 [Unknown]
  - Thrombosis [Recovered/Resolved]
  - Total lung capacity abnormal [Unknown]

NARRATIVE: CASE EVENT DATE: 20220101
